FAERS Safety Report 11250920 (Version 1)
Quarter: 2015Q3

REPORT INFORMATION
  Report Type: Spontaneous
  Country: US (occurrence: US)
  Receive Date: 20150708
  Receipt Date: 20150708
  Transmission Date: 20151125
  Serious: No
  Sender: FDA-Public Use
  Company Number: US-ELI_LILLY_AND_COMPANY-US201103005441

PATIENT
  Age: 77 Year
  Sex: Male
  Weight: 130 kg

DRUGS (5)
  1. DEXAMETHASONE. [Concomitant]
     Active Substance: DEXAMETHASONE
  2. ALIMTA [Suspect]
     Active Substance: PEMETREXED DISODIUM
     Indication: NON-SMALL CELL LUNG CANCER
     Dosage: 500 MG/M2, 21DAYS CYCLE
     Dates: start: 201102, end: 201104
  3. FOLIC ACID. [Concomitant]
     Active Substance: FOLIC ACID
  4. CISPLATIN. [Concomitant]
     Active Substance: CISPLATIN
     Indication: LUNG NEOPLASM MALIGNANT
     Dosage: UNK, UNKNOWN
  5. VITAMIN B12 [Concomitant]
     Active Substance: CYANOCOBALAMIN

REACTIONS (2)
  - Photosensitivity reaction [Unknown]
  - Rash [Unknown]

NARRATIVE: CASE EVENT DATE: 201102
